FAERS Safety Report 6689421-4 (Version None)
Quarter: 2010Q2

REPORT INFORMATION
  Report Type: 
  Country: None (occurrence: None)
  Receive Date: 20100420
  Receipt Date: 20100415
  Transmission Date: 20101027
  Serious: Yes (Hospitalization)
  Sender: FDA-Public Use
  Company Number: FR-BRISTOL-MYERS SQUIBB COMPANY-15065519

PATIENT
  Age: 44 Year
  Sex: Male

DRUGS (3)
  1. ABILIFY [Suspect]
     Indication: BIPOLAR DISORDER
     Dosage: DOSE DIVIDED TO 7.5MG IN UNK-JUN09.AND  INCREASED TO 10MG/DAY
     Route: 048
     Dates: start: 20080101
  2. DEPAKOTE [Concomitant]
     Indication: BIPOLAR DISORDER
     Dosage: DEPAKOTE 500 TABLETS,
     Route: 048
  3. EFFEXOR [Concomitant]
     Indication: BIPOLAR DISORDER
     Dosage: TABLETS
     Route: 048

REACTIONS (2)
  - BLOOD PRESSURE INCREASED [None]
  - TRANSIENT ISCHAEMIC ATTACK [None]
